FAERS Safety Report 10090261 (Version 2)
Quarter: 2014Q2

REPORT INFORMATION
  Report Type: Report from Study
  Country: CL (occurrence: CL)
  Receive Date: 20140421
  Receipt Date: 20140421
  Transmission Date: 20141212
  Serious: Yes (Hospitalization, Other)
  Sender: FDA-Public Use
  Company Number: CL-BRISTOL-MYERS SQUIBB COMPANY-19017979

PATIENT
  Age: 44 Year
  Sex: Female

DRUGS (11)
  1. ORENCIA [Suspect]
     Indication: JUVENILE IDIOPATHIC ARTHRITIS
     Dosage: 3 VIALS?INT 9OCT2013
     Route: 042
     Dates: start: 2010
  2. METHOTREXATE [Concomitant]
  3. ERYTHROMYCIN [Concomitant]
  4. KETOROLAC [Concomitant]
  5. LERTUS [Concomitant]
  6. LYRICA [Concomitant]
  7. ARAVA [Concomitant]
  8. RETARDIN [Concomitant]
  9. MEDROL [Concomitant]
  10. TRAMAL [Concomitant]
  11. PREDNISONE [Concomitant]

REACTIONS (12)
  - Haemorrhoids [Recovering/Resolving]
  - Anal prolapse [Recovering/Resolving]
  - Rectal polyp [Recovering/Resolving]
  - Fractured coccyx [Unknown]
  - Dizziness [Unknown]
  - Fall [Unknown]
  - Anal abscess [Recovering/Resolving]
  - Bronchitis [Not Recovered/Not Resolved]
  - Urinary tract infection [Not Recovered/Not Resolved]
  - Ligament sprain [Unknown]
  - Back pain [Unknown]
  - Crohn^s disease [Unknown]
